FAERS Safety Report 5018030-8 (Version None)
Quarter: 2006Q2

REPORT INFORMATION
  Report Type: 
  Country: None (occurrence: None)
  Receive Date: 20060605
  Receipt Date: 20060511
  Transmission Date: 20061013
  Serious: Yes (Other)
  Sender: FDA-Public Use
  Company Number: DE-MERCK-0605DEU00115

PATIENT
  Age: 37 Year
  Sex: Female

DRUGS (2)
  1. COZAAR [Suspect]
     Indication: CARDIOMYOPATHY
     Route: 048
     Dates: start: 19980101, end: 20060515
  2. BISOPROLOL FUMARATE [Concomitant]
     Route: 048
     Dates: start: 19980101, end: 20060515

REACTIONS (2)
  - ABORTION INDUCED [None]
  - DRUG EXPOSURE DURING PREGNANCY [None]
